FAERS Safety Report 4325596-X (Version None)
Quarter: 2004Q1

REPORT INFORMATION
  Report Type: 
  Country: None (occurrence: None)
  Receive Date: 20040324
  Receipt Date: 20040305
  Transmission Date: 20041129
  Serious: Yes (Hospitalization)
  Sender: FDA-Public Use
  Company Number: USA040361200

PATIENT
  Sex: Male

DRUGS (3)
  1. ZYPREXA [Suspect]
     Dosage: 5 MG
  2. ZOLOFT [Concomitant]
  3. ELAVIL [Concomitant]

REACTIONS (4)
  - ALCOHOL USE [None]
  - DYSARTHRIA [None]
  - ELECTROLYTE IMBALANCE [None]
  - GAIT DISTURBANCE [None]
